FAERS Safety Report 21767888 (Version 2)
Quarter: 2022Q4

REPORT INFORMATION
  Report Type: Spontaneous
  Country: TW (occurrence: TW)
  Receive Date: 20221222
  Receipt Date: 20221226
  Transmission Date: 20230112
  Serious: Yes (Death, Life-Threatening, Hospitalization, Other)
  Sender: FDA-Public Use
  Company Number: TW-AMGEN-TWNSP2022219309

PATIENT

DRUGS (2)
  1. BEVACIZUMAB [Suspect]
     Active Substance: BEVACIZUMAB
     Indication: Hepatocellular carcinoma
     Dosage: 500 MILLIGRAM, Q3WK
     Route: 040
  2. ATEZOLIZUMAB [Concomitant]
     Active Substance: ATEZOLIZUMAB
     Indication: Hepatocellular carcinoma
     Dosage: 1200 MILLIGRAM
     Route: 040

REACTIONS (30)
  - Death [Fatal]
  - Gastrointestinal perforation [Fatal]
  - Gastrointestinal haemorrhage [Unknown]
  - Hepatocellular carcinoma [Unknown]
  - Hyperthyroidism [Unknown]
  - Hypothyroidism [Unknown]
  - Thrombocytopenia [Unknown]
  - Leukopenia [Unknown]
  - Neutropenia [Unknown]
  - Adverse event [Unknown]
  - Alanine aminotransferase increased [Unknown]
  - Hypertension [Unknown]
  - Infusion related reaction [Unknown]
  - Dermatitis [Unknown]
  - Blood bilirubin increased [Unknown]
  - Blood alkaline phosphatase increased [Unknown]
  - Aspartate aminotransferase increased [Unknown]
  - Dizziness [Unknown]
  - Pyrexia [Unknown]
  - Epistaxis [Unknown]
  - Gingival bleeding [Unknown]
  - Decreased appetite [Unknown]
  - Nausea [Unknown]
  - Proteinuria [Unknown]
  - Dysphonia [Unknown]
  - Diarrhoea [Unknown]
  - Headache [Unknown]
  - Fatigue [Unknown]
  - Drug ineffective for unapproved indication [Unknown]
  - Off label use [Unknown]
